FAERS Safety Report 16531605 (Version 1)
Quarter: 2019Q3

REPORT INFORMATION
  Report Type: Spontaneous
  Country: US (occurrence: US)
  Receive Date: 20190705
  Receipt Date: 20190705
  Transmission Date: 20191004
  Serious: No
  Sender: FDA-Public Use
  Company Number: US-BRISTOL-MYERS SQUIBB COMPANY-BMS-2019-064366

PATIENT
  Sex: Female

DRUGS (2)
  1. LOVENOX HP [Interacting]
     Active Substance: ENOXAPARIN SODIUM
     Indication: PRODUCT USED FOR UNKNOWN INDICATION
     Dosage: 40 MILLIGRAM
     Route: 065
  2. COUMADIN [Suspect]
     Active Substance: WARFARIN SODIUM
     Indication: POST PROCEDURAL COMPLICATION
     Dosage: 5 MILLIGRAM
     Route: 065
     Dates: start: 20190528, end: 20190609

REACTIONS (1)
  - Labelled drug-drug interaction medication error [Unknown]
